FAERS Safety Report 23401499 (Version 6)
Quarter: 2025Q3

REPORT INFORMATION
  Report Type: Spontaneous
  Country: US (occurrence: US)
  Receive Date: 20240115
  Receipt Date: 20250714
  Transmission Date: 20251021
  Serious: Yes (Hospitalization, Other)
  Sender: PFIZER
  Company Number: US-PFIZER INC-202400009661

PATIENT
  Age: 85 Year
  Sex: Female
  Weight: 47.63 kg

DRUGS (3)
  1. VYNDAMAX [Suspect]
     Active Substance: TAFAMIDIS
     Indication: Amyloidosis
     Dosage: 61 MG, 1X/DAY
     Route: 048
     Dates: start: 202312
  2. VYNDAMAX [Suspect]
     Active Substance: TAFAMIDIS
     Indication: Cardiac amyloidosis
     Dosage: 61MG TAKEN EVERY MORNING EITHER WITH WATER OR ORANGE JUICE
     Dates: start: 20240201, end: 20241227
  3. TAFAMIDIS MEGLUMINE [Suspect]
     Active Substance: TAFAMIDIS MEGLUMINE

REACTIONS (17)
  - Renal amyloidosis [Unknown]
  - Fatigue [Not Recovered/Not Resolved]
  - Back pain [Unknown]
  - Therapeutic product effect incomplete [Unknown]
  - Cardiac disorder [Unknown]
  - Peripheral swelling [Unknown]
  - Dyspnoea [Unknown]
  - Abdominal pain upper [Unknown]
  - Weight increased [Unknown]
  - Intra-abdominal fluid collection [Unknown]
  - Nausea [Not Recovered/Not Resolved]
  - Asthenia [Not Recovered/Not Resolved]
  - Abdominal pain upper [Unknown]
  - Urinary tract infection [Unknown]
  - Blood urine present [Unknown]
  - Fall [Unknown]
  - Weight decreased [Not Recovered/Not Resolved]

NARRATIVE: CASE EVENT DATE: 20241201
